FAERS Safety Report 16852440 (Version 1)
Quarter: 2019Q3

REPORT INFORMATION
  Report Type: Spontaneous
  Country: US (occurrence: US)
  Receive Date: 20190925
  Receipt Date: 20190925
  Transmission Date: 20191005
  Serious: Yes (Other)
  Sender: FDA-Public Use
  Company Number: US-ASSERTIO THERAPEUTICS, INC.-US-2018DEP001910

PATIENT

DRUGS (5)
  1. GRALISE [Suspect]
     Active Substance: GABAPENTIN
     Indication: ROAD TRAFFIC ACCIDENT
  2. PROAIR HFA [Concomitant]
     Active Substance: ALBUTEROL SULFATE
     Indication: ASTHMA
     Dosage: UNK, PRN
     Route: 055
  3. GRALISE [Suspect]
     Active Substance: GABAPENTIN
     Indication: NERVE INJURY
  4. ADVAIR HFA [Concomitant]
     Active Substance: FLUTICASONE PROPIONATE\SALMETEROL XINAFOATE
     Indication: ASTHMA
     Dosage: 500 MG, QD
     Route: 055
  5. GRALISE [Suspect]
     Active Substance: GABAPENTIN
     Indication: NERVE DEGENERATION
     Dosage: 1200 MG, UNK
     Route: 048
     Dates: start: 2015, end: 20181113

REACTIONS (6)
  - Fatigue [Not Recovered/Not Resolved]
  - Product dispensing error [Unknown]
  - Product dose omission [Unknown]
  - Cold sweat [Not Recovered/Not Resolved]
  - Pneumonia [Not Recovered/Not Resolved]
  - Product use in unapproved indication [Unknown]

NARRATIVE: CASE EVENT DATE: 2015
